FAERS Safety Report 8473462-0 (Version None)
Quarter: 2012Q2

REPORT INFORMATION
  Report Type: 
  Country: None (occurrence: None)
  Receive Date: 20120625
  Receipt Date: 20120625
  Transmission Date: 20120825
  Serious: Yes (Other)
  Sender: FDA-Public Use
  Company Number: None

PATIENT
  Sex: Female
  Weight: 61.2356 kg

DRUGS (2)
  1. NITROFURANTOIN [Suspect]
     Indication: URINARY TRACT INFECTION
     Dosage: 100MG PO ONCE
     Route: 048
  2. LEVITHYROXYIN FOR THYROID 12.5MG [Concomitant]

REACTIONS (3)
  - BURNING SENSATION [None]
  - PAIN IN EXTREMITY [None]
  - DIARRHOEA [None]
